FAERS Safety Report 5823740-6 (Version None)
Quarter: 2008Q3

REPORT INFORMATION
  Report Type: 
  Country: None (occurrence: None)
  Receive Date: 20080725
  Receipt Date: 20080714
  Transmission Date: 20090109
  Serious: Yes (Other)
  Sender: FDA-Public Use
  Company Number: FR-PFIZER INC-2008058573

PATIENT
  Sex: Female

DRUGS (5)
  1. XANAX [Suspect]
     Route: 048
     Dates: start: 20080501, end: 20080501
  2. NOCTAMID [Suspect]
     Route: 048
     Dates: start: 20080501, end: 20080501
  3. SEROPRAM [Suspect]
     Indication: DEPRESSION
     Route: 048
     Dates: start: 20070901, end: 20080501
  4. ETANERCEPT [Concomitant]
     Indication: PSORIASIS
     Route: 058
     Dates: start: 20080201, end: 20080501
  5. ETANERCEPT [Concomitant]
     Indication: PSORIATIC ARTHROPATHY

REACTIONS (3)
  - INTENTIONAL OVERDOSE [None]
  - SEDATION [None]
  - SUICIDE ATTEMPT [None]
